FAERS Safety Report 5419784-9 (Version None)
Quarter: 2007Q3

REPORT INFORMATION
  Report Type: 
  Country: None (occurrence: None)
  Receive Date: 20070820
  Receipt Date: 20070815
  Transmission Date: 20080115
  Serious: Yes (Life-Threatening)
  Sender: FDA-Public Use
  Company Number: SE-ASTRAZENECA-2007SE04436

PATIENT
  Age: 25 Year
  Sex: Female

DRUGS (1)
  1. SEROQUEL [Suspect]

REACTIONS (3)
  - LOSS OF CONSCIOUSNESS [None]
  - OVERDOSE [None]
  - RESPIRATORY DEPRESSION [None]
